FAERS Safety Report 9468890 (Version 2)
Quarter: 2013Q3

REPORT INFORMATION
  Report Type: Spontaneous
  Country: KE (occurrence: KE)
  Receive Date: 20130821
  Receipt Date: 20130821
  Transmission Date: 20140515
  Serious: Yes (Other)
  Sender: FDA-Public Use
  Company Number: KE-ASTRAZENECA-2013SE38336

PATIENT
  Age: 62 Year
  Sex: Female

DRUGS (1)
  1. CRESTOR [Suspect]
     Indication: DYSLIPIDAEMIA
     Route: 048

REACTIONS (3)
  - Fatigue [Unknown]
  - Myopathy [Unknown]
  - Blood creatine phosphokinase increased [Not Recovered/Not Resolved]
